FAERS Safety Report 6242177-1 (Version None)
Quarter: 2009Q2

REPORT INFORMATION
  Report Type: 
  Country: None (occurrence: None)
  Receive Date: 20090624
  Receipt Date: 20090611
  Transmission Date: 20091009
  Serious: Yes (Other)
  Sender: FDA-Public Use
  Company Number: GB-RANBAXY-2009RR-24987

PATIENT
  Age: 16 Year
  Sex: Female
  Weight: 80 kg

DRUGS (4)
  1. ISOTRETINOIN [Suspect]
     Indication: ACNE
     Dosage: 50 MG, QD
     Route: 048
     Dates: start: 20090421
  2. DIANETTE [Concomitant]
     Indication: ACNE
     Dosage: 1 DF, QD
     Route: 048
     Dates: start: 20081230
  3. DIANETTE [Concomitant]
     Indication: CONTRACEPTION
  4. RETIN-A [Concomitant]
     Indication: ACNE
     Dosage: UNK
     Route: 061
     Dates: start: 20081230, end: 20090301

REACTIONS (4)
  - CHEILITIS [None]
  - LIP DRY [None]
  - RASH [None]
  - RASH PUSTULAR [None]
